FAERS Safety Report 6392476-8 (Version None)
Quarter: 2009Q4

REPORT INFORMATION
  Report Type: 
  Country: None (occurrence: None)
  Receive Date: 20091007
  Receipt Date: 20090929
  Transmission Date: 20100525
  Serious: Yes (Other)
  Sender: FDA-Public Use
  Company Number: CA-BAXTER-2009BH015074

PATIENT
  Age: 38 Year
  Sex: Male

DRUGS (5)
  1. 5% DEXTROSE INJECTION [Suspect]
     Indication: SURGERY
     Route: 065
     Dates: start: 20090929
  2. CEFAZOLIN [Suspect]
     Indication: SURGERY
     Route: 065
     Dates: start: 20090929
  3. MIDAZOLAM HCL [Concomitant]
     Indication: DRUG USE FOR UNKNOWN INDICATION
     Route: 065
  4. FENTANYL-100 [Concomitant]
     Indication: DRUG USE FOR UNKNOWN INDICATION
     Route: 065
  5. PROPOFOL [Concomitant]
     Indication: DRUG USE FOR UNKNOWN INDICATION
     Route: 065

REACTIONS (2)
  - HYPERSENSITIVITY [None]
  - WHEEZING [None]
